FAERS Safety Report 10023057 (Version 3)
Quarter: 2014Q2

REPORT INFORMATION
  Report Type: Report from Study
  Country: US (occurrence: US)
  Receive Date: 20140319
  Receipt Date: 20140408
  Transmission Date: 20141212
  Serious: Yes (Death, Hospitalization, Other)
  Sender: FDA-Public Use
  Company Number: PHEH2013US026799

PATIENT
  Age: 65 Year
  Sex: Female

DRUGS (28)
  1. TOBI [Suspect]
     Indication: BRONCHITIS
     Dosage: 300 MG, (FOR 28 DAYS, THEN OFF FOR 28 DAYS)
     Route: 055
  2. TOBI [Suspect]
     Indication: ASTHMA
     Dosage: UNK
     Route: 055
     Dates: start: 201305
  3. TOBI [Suspect]
     Indication: PSEUDOMONAS INFECTION
     Dosage: UNK UKN, BID (28 DAYS ON AND 28 DAYS OFF)
     Route: 055
     Dates: start: 201307, end: 201307
  4. TOBI [Suspect]
     Dosage: UNK UKN, BID (28 DAYS ON AND 28 DAYS OFF)
     Route: 055
     Dates: start: 201309, end: 201309
  5. SYMBICORT [Concomitant]
     Dosage: 2 DF, BID (RINSE MOUTH AFTER USE)
     Route: 055
  6. KLOR-CON [Concomitant]
     Dosage: 1 DF, QD
     Route: 048
  7. ALBUTEROL SULFATE [Concomitant]
     Dosage: UNK UKN, PRN (EVERY SIX HOURS) (UNIT DOSE ALBUTEROL IN 3 ML SALINE)
     Route: 055
  8. POTASSIUM CHLORIDE [Concomitant]
     Dosage: 1 DF, QD
     Route: 048
  9. HYDRALAZINE HYDROCHLORIDE [Concomitant]
     Dosage: 1 DF, BID
     Route: 048
  10. XANAX [Concomitant]
     Dosage: 1 DF, BID (PRN)
     Route: 048
  11. SPIRIVA HANDIHALER [Concomitant]
     Dosage: 1 DF, QD (NEEDS OVERNIGHT MAILED)
     Route: 055
  12. PROAIR HFA [Concomitant]
     Dosage: 1 DF, (2 INHALATIONS EVERY SIX HOURS PRN)
     Route: 055
  13. FAMOTIDINE [Concomitant]
     Dosage: 1 DF, BID
     Route: 048
  14. ZOLOFT [Concomitant]
     Dosage: 2 DF, BID
     Route: 048
  15. SINGULAIR [Concomitant]
     Dosage: 1 DF, DAILY
     Route: 048
  16. VITAMIN B12 [Concomitant]
     Dosage: 1 DF, DAILY
     Route: 048
  17. IRON [Concomitant]
     Dosage: 1 DF, DAILY
     Route: 048
  18. FOLIC ACID [Concomitant]
     Dosage: 1 DF, DAILY
     Route: 048
  19. AYR [Concomitant]
     Dosage: UNK UKN, PRN
     Route: 045
  20. ASTELIN [Concomitant]
     Dosage: 2 DF, BIW (PRN)
     Route: 045
  21. DULERA [Concomitant]
     Dosage: 2 DF, BID (RINSE MOUNTH AFTER USE)
     Route: 055
  22. LOVASTATIN [Concomitant]
     Dosage: 1 DF, DAILY
     Route: 048
  23. OMEPRAZOLE [Concomitant]
     Dosage: 1 DF, QD (PRN)
     Route: 048
  24. L-THYROXINE SODIUM [Concomitant]
     Dosage: 1 DF, DAILY
     Route: 048
  25. BENICAR HCT [Concomitant]
     Dosage: 1 DF, DAILY
     Route: 048
  26. ASPIRIN [Concomitant]
     Indication: HAEMORRHAGE
     Dosage: UNK
  27. ACCUPRIL [Concomitant]
     Indication: COUGH
     Dosage: UNK
  28. CORTICOSTEROIDS [Concomitant]
     Dosage: UNK UKN, (DOSE TAPERED)

REACTIONS (14)
  - Death [Fatal]
  - Cardiac arrest [Unknown]
  - Unresponsive to stimuli [Unknown]
  - Fall [Unknown]
  - Chronic respiratory failure [Unknown]
  - Anaphylactic reaction [Unknown]
  - Bronchiectasis [Unknown]
  - Bacterial disease carrier [Unknown]
  - Pneumonia staphylococcal [Unknown]
  - Cystic fibrosis [Unknown]
  - Dyspnoea [Unknown]
  - Ankle fracture [Unknown]
  - Spirometry abnormal [Unknown]
  - Drug intolerance [Unknown]
